FAERS Safety Report 4959571-9 (Version None)
Quarter: 2006Q1

REPORT INFORMATION
  Report Type: 
  Country: None (occurrence: None)
  Receive Date: 20060331
  Receipt Date: 20051123
  Transmission Date: 20060701
  Serious: Yes (Hospitalization)
  Sender: FDA-Public Use
  Company Number: US-MERCK-0511USA04073

PATIENT
  Age: 66 Year
  Sex: Male
  Weight: 102 kg

DRUGS (9)
  1. VIOXX [Suspect]
     Indication: ARTHRITIS
     Route: 048
     Dates: start: 20000101, end: 20041001
  2. ALBUTEROL [Concomitant]
     Indication: ASTHMA
     Route: 065
  3. ALPHAGAN [Concomitant]
     Indication: GLAUCOMA
     Route: 065
  4. ISOSORBIDE DINITRATE [Concomitant]
     Indication: ANGINA PECTORIS
     Route: 065
  5. MENTAX [Concomitant]
     Indication: TINEA PEDIS
     Route: 065
  6. NASONEX [Concomitant]
     Indication: NASAL DECONGESTION THERAPY
     Route: 065
  7. SLO-BID [Concomitant]
     Indication: ASTHMA
     Route: 065
  8. XALATAN [Concomitant]
     Indication: EYE INFECTION
     Route: 065
  9. ZYRTEC [Concomitant]
     Indication: ANTIALLERGIC THERAPY
     Route: 065

REACTIONS (38)
  - ACTINIC KERATOSIS [None]
  - ACUTE MYOCARDIAL INFARCTION [None]
  - ARTHRALGIA [None]
  - ASTHMA [None]
  - BLOOD CHOLESTEROL INCREASED [None]
  - CELLULITIS [None]
  - CERUMEN IMPACTION [None]
  - CHEST DISCOMFORT [None]
  - CHEST PAIN [None]
  - CORNEAL DISORDER [None]
  - CORONARY ARTERY DISEASE [None]
  - CORONARY ARTERY STENOSIS [None]
  - COUGH [None]
  - DRUG HYPERSENSITIVITY [None]
  - DRUG INEFFECTIVE [None]
  - DYSPNOEA EXERTIONAL [None]
  - ELECTROCARDIOGRAM T WAVE ABNORMAL [None]
  - FATIGUE [None]
  - HAEMATOCHEZIA [None]
  - HAEMORRHOIDS [None]
  - HYPERCHOLESTEROLAEMIA [None]
  - HYPERLIPIDAEMIA [None]
  - HYPOTENSION [None]
  - LOW DENSITY LIPOPROTEIN INCREASED [None]
  - MITRAL VALVE INCOMPETENCE [None]
  - MYOCARDIAL INFARCTION [None]
  - OTITIS EXTERNA [None]
  - PAIN IN JAW [None]
  - POST PROCEDURAL COMPLICATION [None]
  - RAYNAUD'S PHENOMENON [None]
  - RHINITIS ALLERGIC [None]
  - ROTATOR CUFF SYNDROME [None]
  - SCAR [None]
  - SHOULDER PAIN [None]
  - SINUS TACHYCARDIA [None]
  - TENDON RUPTURE [None]
  - THROMBOCYTOPENIA [None]
  - VENTRICULAR HYPOKINESIA [None]
